FAERS Safety Report 5919557-4 (Version None)
Quarter: 2008Q4

REPORT INFORMATION
  Report Type: 
  Country: None (occurrence: None)
  Receive Date: 20081015
  Receipt Date: 20071205
  Transmission Date: 20090506
  Serious: Yes (Other)
  Sender: FDA-Public Use
  Company Number: US-BRISTOL-MYERS SQUIBB COMPANY-13944525

PATIENT
  Age: 67 Year
  Sex: Female

DRUGS (1)
  1. KENALOG-40 [Suspect]
     Indication: MACULAR OEDEMA
     Dosage: 1 DOSAGE FORM = 40 MG - 10 ML,STRENGTH 0.075ML INJECTION.
     Route: 031
     Dates: start: 20070927

REACTIONS (1)
  - EYE INFECTION [None]
